FAERS Safety Report 23658738 (Version 1)
Quarter: 2024Q1

REPORT INFORMATION
  Report Type: Spontaneous
  Country: CA (occurrence: None)
  Receive Date: 20240321
  Receipt Date: 20240321
  Transmission Date: 20240410
  Serious: Yes (Other)
  Sender: FDA-Public Use
  Company Number: 2024A063173

PATIENT

DRUGS (2)
  1. OLAPARIB [Suspect]
     Active Substance: OLAPARIB
     Indication: Metastatic neoplasm
     Dosage: UNKNOWN
  2. EDOTREOTIDE\LUTETIUM LU-177 [Suspect]
     Active Substance: EDOTREOTIDE\LUTETIUM LU-177
     Indication: Metastatic neoplasm

REACTIONS (2)
  - Haematotoxicity [Unknown]
  - Hyperglycaemia [Unknown]
